FAERS Safety Report 5483648-5 (Version None)
Quarter: 2007Q4

REPORT INFORMATION
  Report Type: 
  Country: None (occurrence: None)
  Receive Date: 20071012
  Receipt Date: 20071009
  Transmission Date: 20080405
  Serious: Yes (Life-Threatening, Hospitalization, Other)
  Sender: FDA-Public Use
  Company Number: PHEH2007US11409

PATIENT
  Age: 48 Year
  Sex: Female

DRUGS (10)
  1. ZOMETA [Suspect]
     Dosage: UNK, UNK
     Dates: start: 20070727
  2. ASPIRIN [Concomitant]
  3. ADVAIR DISKUS 100/50 [Concomitant]
  4. ALBUTEROL [Concomitant]
  5. HYPERTONIC SOLUTIONS [Concomitant]
  6. MUCINEX [Concomitant]
  7. STEROIDS NOS [Concomitant]
  8. NEXIUM [Concomitant]
  9. CALCIUM WITH VITAMIN D [Concomitant]
  10. ZITHROMAX [Concomitant]
     Dosage: UNK, TIW

REACTIONS (11)
  - BONE PAIN [None]
  - CHILLS [None]
  - CHOKING [None]
  - FEELING ABNORMAL [None]
  - GINGIVAL SWELLING [None]
  - GINGIVITIS [None]
  - HYPOAESTHESIA [None]
  - OEDEMA PERIPHERAL [None]
  - PYREXIA [None]
  - TACHYCARDIA [None]
  - TREMOR [None]
